FAERS Safety Report 10033274 (Version 2)
Quarter: 2014Q1

REPORT INFORMATION
  Report Type: Report from Study
  Country: ZA (occurrence: ZA)
  Receive Date: 20140324
  Receipt Date: 20140324
  Transmission Date: 20141002
  Serious: Yes (Hospitalization, Other)
  Sender: FDA-Public Use
  Company Number: ZA-GILEAD-2014-0095219

PATIENT
  Age: 21 Year
  Sex: Female
  Weight: 53.5 kg

DRUGS (2)
  1. EFAVIRENZ/EMTRICITABINE/TENOFOVIR DISOPROXIL FUMARATE [Suspect]
     Indication: HIV INFECTION
     Dosage: 1 DF, QD
     Route: 048
     Dates: start: 20131031
  2. TRAMADOL HYDROCHLORIDE [Concomitant]
     Indication: ANALGESIC THERAPY
     Dosage: UNK
     Route: 065

REACTIONS (2)
  - Immune reconstitution inflammatory syndrome [Unknown]
  - Kaposi^s sarcoma [Not Recovered/Not Resolved]
